FAERS Safety Report 25750934 (Version 7)
Quarter: 2025Q4

REPORT INFORMATION
  Report Type: Spontaneous
  Country: US (occurrence: US)
  Receive Date: 20250902
  Receipt Date: 20251105
  Transmission Date: 20260118
  Serious: No
  Sender: PFIZER
  Company Number: US-PFIZER INC-202500170931

PATIENT
  Age: 8 Year
  Sex: Female
  Weight: 20.1 kg

DRUGS (2)
  1. GENOTROPIN [Suspect]
     Active Substance: SOMATROPIN
     Indication: Short stature
     Dosage: 0.9 MG
     Route: 058
     Dates: start: 2024
  2. GENOTROPIN [Suspect]
     Active Substance: SOMATROPIN
     Dosage: 0.6 MG, DAILY

REACTIONS (3)
  - Device mechanical issue [Unknown]
  - Device material issue [Unknown]
  - Device use issue [Unknown]

NARRATIVE: CASE EVENT DATE: 20250825
